FAERS Safety Report 23494128 (Version 2)
Quarter: 2024Q1

REPORT INFORMATION
  Report Type: Spontaneous
  Country: BE (occurrence: BE)
  Receive Date: 20240207
  Receipt Date: 20240220
  Transmission Date: 20240409
  Serious: Yes (Other)
  Sender: FDA-Public Use
  Company Number: BE-China IPSEN SC-2024-01994

PATIENT
  Age: 57 Year
  Sex: Female

DRUGS (1)
  1. LANREOTIDE ACETATE [Suspect]
     Active Substance: LANREOTIDE ACETATE
     Indication: Acromegaly
     Route: 065

REACTIONS (2)
  - Injection site necrosis [Unknown]
  - Injection site granuloma [Unknown]

NARRATIVE: CASE EVENT DATE: 20231101
